FAERS Safety Report 16393374 (Version 1)
Quarter: 2019Q2

REPORT INFORMATION
  Report Type: Spontaneous
  Country: US (occurrence: US)
  Receive Date: 20190605
  Receipt Date: 20190605
  Transmission Date: 20190711
  Serious: Yes (Other)
  Sender: FDA-Public Use
  Company Number: US-PFIZER INC-2019237692

PATIENT
  Age: 63 Year
  Sex: Male

DRUGS (3)
  1. LUCENTIS [Concomitant]
     Active Substance: RANIBIZUMAB
     Dosage: UNK
  2. AVASTIN [Concomitant]
     Active Substance: BEVACIZUMAB
     Dosage: UNK
  3. LIPITOR [Suspect]
     Active Substance: ATORVASTATIN CALCIUM
     Dosage: UNK

REACTIONS (5)
  - Myalgia [Unknown]
  - Vitreous haemorrhage [Unknown]
  - Retinal aneurysm [Unknown]
  - Eye haemorrhage [Unknown]
  - Hypertension [Unknown]
